FAERS Safety Report 7898235-9 (Version None)
Quarter: 2011Q4

REPORT INFORMATION
  Report Type: 
  Country: None (occurrence: None)
  Receive Date: 20111107
  Receipt Date: 20111102
  Transmission Date: 20120403
  Serious: Yes (Other)
  Sender: FDA-Public Use
  Company Number: US-GLAXOSMITHKLINE-A0947008A

PATIENT
  Age: 62 Year
  Sex: Female

DRUGS (8)
  1. MELOXICAM [Concomitant]
  2. SEREVENT [Suspect]
     Indication: ASTHMA
     Dosage: 1PUFF AS REQUIRED
     Route: 055
     Dates: start: 19861004
  3. FLUOXETINE HCL [Concomitant]
  4. TRAZODONE HYDROCHLORIDE [Concomitant]
  5. ADVAIR DISKUS 100/50 [Suspect]
     Indication: ASTHMA
     Route: 055
  6. DIAVAN [Concomitant]
  7. QVAR 40 [Concomitant]
  8. ALBUTEROL [Concomitant]

REACTIONS (3)
  - ASTHMA [None]
  - PRODUCT QUALITY ISSUE [None]
  - OROPHARYNGEAL PAIN [None]
